FAERS Safety Report 9255067 (Version 1)
Quarter: 2013Q2

REPORT INFORMATION
  Report Type: Spontaneous
  Country: US (occurrence: US)
  Receive Date: 20130425
  Receipt Date: 20130425
  Transmission Date: 20140414
  Serious: Yes (Hospitalization)
  Sender: FDA-Public Use
  Company Number: US-JNJFOC-20130412353

PATIENT
  Age: 59 Year
  Sex: Female
  Weight: 83.9 kg

DRUGS (4)
  1. NICOTROL INHALER [Suspect]
     Indication: CORONARY ARTERY DISEASE
     Route: 065
     Dates: start: 201304, end: 201304
  2. NICOTROL INHALER [Suspect]
     Indication: CORONARY ARTERY DISEASE
     Route: 065
  3. NICOTROL INHALER [Suspect]
     Indication: CHRONIC OBSTRUCTIVE PULMONARY DISEASE
     Route: 065
     Dates: start: 201304, end: 201304
  4. NICOTROL INHALER [Suspect]
     Indication: CHRONIC OBSTRUCTIVE PULMONARY DISEASE
     Route: 065

REACTIONS (5)
  - Apparent death [Unknown]
  - Dyspnoea [Unknown]
  - Nervousness [Not Recovered/Not Resolved]
  - Off label use [Unknown]
  - Off label use [None]
